FAERS Safety Report 16488928 (Version 2)
Quarter: 2019Q3

REPORT INFORMATION
  Report Type: Spontaneous
  Country: US (occurrence: US)
  Receive Date: 20190628
  Receipt Date: 20190702
  Transmission Date: 20191004
  Serious: Yes (Hospitalization)
  Sender: FDA-Public Use
  Company Number: US-BIOGEN-2019BI00751607

PATIENT
  Age: 33 Year
  Sex: Female

DRUGS (2)
  1. SOLU-MEDROL [Suspect]
     Active Substance: METHYLPREDNISOLONE SODIUM SUCCINATE
     Indication: EYE SWELLING
     Route: 065
  2. TECFIDERA [Suspect]
     Active Substance: DIMETHYL FUMARATE
     Indication: MULTIPLE SCLEROSIS
     Route: 065
     Dates: start: 20190607

REACTIONS (6)
  - Multiple sclerosis relapse [Unknown]
  - Visual impairment [Unknown]
  - Drug interaction [Unknown]
  - Eye swelling [Unknown]
  - Feeling abnormal [Unknown]
  - Hypoacusis [Unknown]

NARRATIVE: CASE EVENT DATE: 201906
